FAERS Safety Report 4386301-4 (Version None)
Quarter: 2004Q2

REPORT INFORMATION
  Report Type: 
  Country: None (occurrence: None)
  Receive Date: 20040625
  Receipt Date: 20040625
  Transmission Date: 20050107
  Serious: No
  Sender: FDA-Public Use
  Company Number: None

PATIENT
  Age: 83 Year
  Sex: Female

DRUGS (2)
  1. OXYCODONE HCL [Suspect]
     Indication: SPINAL CORD COMPRESSION
     Dosage: PO
     Route: 048
  2. DIAZEPAM [Suspect]
     Dosage: PO
     Route: 048

REACTIONS (1)
  - TOXIC INDUCED ENCEPHALOPATHY [None]
